FAERS Safety Report 4694301-X (Version None)
Quarter: 2005Q2

REPORT INFORMATION
  Report Type: 
  Country: None (occurrence: None)
  Receive Date: 20050620
  Receipt Date: 20050608
  Transmission Date: 20051028
  Serious: Yes (Hospitalization)
  Sender: FDA-Public Use
  Company Number: BE-ABBOTT-05P-013-0303112-00

PATIENT
  Sex: Female
  Weight: 50 kg

DRUGS (1)
  1. KALETRA [Suspect]
     Indication: HIV INFECTION
     Route: 048
     Dates: start: 20040827

REACTIONS (3)
  - DISSEMINATED TUBERCULOSIS [None]
  - TOXOPLASMOSIS [None]
  - TREATMENT NONCOMPLIANCE [None]
